FAERS Safety Report 8344877 (Version 3)
Quarter: 2013Q2

REPORT INFORMATION
  Report Type: Spontaneous
  Country: US (occurrence: None)
  Receive Date: 20120111
  Receipt Date: 20120914
  Transmission Date: 20140414
  Serious: Yes (Life-Threatening, Hospitalization, Other)
  Sender: FDA-Public Use
  Company Number: JPI-P-019019

PATIENT
  Age: 35 Year
  Sex: Female
  Weight: 136.08 kg

DRUGS (6)
  1. XYREM [Suspect]
     Indication: NARCOLEPSY
     Route: 048
     Dates: start: 2009
  2. XYREM [Suspect]
     Indication: SOMNOLENCE
     Route: 048
     Dates: start: 2009
  3. ESCITALOPRAM OXALATE [Concomitant]
  4. AMPHETAMINE, DEXTROAMPHETAMINE MIXED SALTS [Concomitant]
  5. ARIPIPRAZOLE [Concomitant]
  6. IBUPROFEN [Concomitant]

REACTIONS (7)
  - PULMONARY EMBOLISM [None]
  - RESPIRATORY FAILURE [None]
  - POST PROCEDURAL COMPLICATION [None]
  - HYPERCOAGULATION [None]
  - MENORRHAGIA [None]
  - Dyspnoea [None]
  - Blood iron decreased [None]
